FAERS Safety Report 20229336 (Version 1)
Quarter: 2021Q4

REPORT INFORMATION
  Report Type: Spontaneous
  Country: HR (occurrence: HR)
  Receive Date: 20211225
  Receipt Date: 20211225
  Transmission Date: 20220303
  Serious: Yes (Hospitalization, Other)
  Sender: FDA-Public Use
  Company Number: HR-002147023-NVSC2021HR211256

PATIENT
  Age: 53 Year
  Sex: Male

DRUGS (11)
  1. PANTOPRAZOLE [Suspect]
     Active Substance: PANTOPRAZOLE
     Indication: Product used for unknown indication
     Dosage: UNK,THERAPY START DATE:THERAPY END DATE:ASKU
     Route: 065
  2. TICAGRELOR [Suspect]
     Active Substance: TICAGRELOR
     Indication: Coronary artery disease
     Dosage: UNK
     Route: 048
     Dates: start: 20200502, end: 20201225
  3. TICAGRELOR [Suspect]
     Active Substance: TICAGRELOR
     Dosage: 2 X 90 MG,THERAPY START DATE:THERAPY END DATE :ASKU
     Route: 065
  4. ASPIRIN [Suspect]
     Active Substance: ASPIRIN
     Indication: Product used for unknown indication
     Dosage: UNK,THERAPY START DATE :THERAPY END DATE:ASKU
     Route: 065
  5. ATORVASTATIN [Suspect]
     Active Substance: ATORVASTATIN
     Indication: Product used for unknown indication
     Dosage: UNK,THERAPY START DATE :THERAPY END DATE:ASKU
     Route: 065
  6. TRIMETAZIDINE [Suspect]
     Active Substance: TRIMETAZIDINE
     Indication: Product used for unknown indication
     Dosage: 2 X 35 MG,THERAPY START DATE:THERAPY END DATE:ASKU
     Route: 065
  7. ANDOL [Concomitant]
     Active Substance: ASPIRIN
     Indication: Product used for unknown indication
     Dosage: UNK
     Route: 065
  8. CONTROLOC [Concomitant]
     Active Substance: PANTOPRAZOLE SODIUM
     Indication: Product used for unknown indication
     Dosage: UNK
     Route: 065
     Dates: start: 20200502, end: 20201225
  9. ASPIRIN [Concomitant]
     Active Substance: ASPIRIN
     Indication: Product used for unknown indication
     Dosage: UNK
     Route: 065
  10. ATORVASTATIN [Concomitant]
     Active Substance: ATORVASTATIN
     Indication: Product used for unknown indication
     Dosage: UNK
     Route: 048
     Dates: start: 20200502, end: 20201225
  11. TRIMETAZIDINE DIHYDROCHLORIDE [Concomitant]
     Active Substance: TRIMETAZIDINE DIHYDROCHLORIDE
     Indication: Product used for unknown indication
     Dosage: UNK
     Route: 065

REACTIONS (9)
  - Myocardial necrosis marker increased [Unknown]
  - Arrhythmia [Unknown]
  - Myocardial infarction [Unknown]
  - Haematoma [Recovered/Resolved]
  - Electrocardiogram ST segment elevation [Unknown]
  - Chest pain [Unknown]
  - Hypokinesia [Unknown]
  - Feeling abnormal [Unknown]
  - Coronary artery disease [Unknown]

NARRATIVE: CASE EVENT DATE: 20200501
